FAERS Safety Report 4289179-2 (Version None)
Quarter: 2004Q1

REPORT INFORMATION
  Report Type: 
  Country: None (occurrence: None)
  Receive Date: 20040115
  Receipt Date: 20030331
  Transmission Date: 20041129
  Serious: Yes (Death)
  Sender: FDA-Public Use
  Company Number: 200482

PATIENT
  Age: 75 Year
  Sex: Female

DRUGS (4)
  1. ACTIVASE [Suspect]
     Indication: ACUTE MYOCARDIAL INFARCTION
     Dosage: 5 MG, QIH, INTRACORONARY
     Dates: start: 20030201, end: 20030201
  2. INTEGRILIN [Suspect]
     Indication: ACUTE MYOCARDIAL INFARCTION
     Dates: start: 20030201, end: 20030201
  3. TNKASE [Concomitant]
  4. LOVENOX [Concomitant]

REACTIONS (2)
  - HAEMORRHAGE INTRACRANIAL [None]
  - OVERDOSE [None]
